FAERS Safety Report 18649728 (Version 1)
Quarter: 2020Q4

REPORT INFORMATION
  Report Type: Spontaneous
  Country: US (occurrence: US)
  Receive Date: 20201222
  Receipt Date: 20201222
  Transmission Date: 20210114
  Serious: Yes (Other)
  Sender: FDA-Public Use
  Company Number: US-ROCHE-2733795

PATIENT
  Sex: Female
  Weight: 81.72 kg

DRUGS (4)
  1. CARBOPLATIN. [Concomitant]
     Active Substance: CARBOPLATIN
  2. KADCYLA [Suspect]
     Active Substance: ADO-TRASTUZUMAB EMTANSINE
     Indication: HER2 POSITIVE BREAST CANCER
     Route: 065
     Dates: start: 20201113
  3. HERCEPTIN [Suspect]
     Active Substance: TRASTUZUMAB
     Indication: HER2 POSITIVE BREAST CANCER
     Route: 065
  4. PERJETA [Suspect]
     Active Substance: PERTUZUMAB
     Indication: HER2 POSITIVE BREAST CANCER
     Route: 065

REACTIONS (2)
  - Ill-defined disorder [Unknown]
  - Depression [Unknown]
